FAERS Safety Report 5677592-8 (Version None)
Quarter: 2008Q1

REPORT INFORMATION
  Report Type: 
  Country: None (occurrence: None)
  Receive Date: 20080324
  Receipt Date: 20070620
  Transmission Date: 20080703
  Serious: No
  Sender: FDA-Public Use
  Company Number: US-ABBOTT-07P-163-0372158-00

PATIENT
  Sex: Female
  Weight: 72.64 kg

DRUGS (5)
  1. DEPACON [Suspect]
     Indication: MIGRAINE
     Route: 042
     Dates: start: 20070613, end: 20070617
  2. ASPIRIN [Concomitant]
     Indication: THROMBOSIS PROPHYLAXIS
     Route: 048
  3. PARACETAMOL [Concomitant]
     Indication: HEADACHE
     Route: 048
  4. PROPRANOLOL [Concomitant]
     Indication: BLOOD PRESSURE
     Route: 048
     Dates: start: 20070301, end: 20070620
  5. METAXALONE [Concomitant]
     Indication: MIGRAINE
     Route: 048
     Dates: start: 20070618, end: 20070620

REACTIONS (6)
  - AMNESIA [None]
  - COLD SWEAT [None]
  - DRUG INEFFECTIVE [None]
  - GAIT DISTURBANCE [None]
  - MIGRAINE [None]
  - PAIN [None]
